FAERS Safety Report 10026106 (Version 2)
Quarter: 2014Q2

REPORT INFORMATION
  Report Type: Spontaneous
  Country: FR (occurrence: FR)
  Receive Date: 20140320
  Receipt Date: 20140605
  Transmission Date: 20141212
  Serious: Yes (Hospitalization)
  Sender: FDA-Public Use
  Company Number: FR-TEVA-467938ISR

PATIENT
  Age: 30 Year
  Sex: Female

DRUGS (6)
  1. IBUPROFENE [Suspect]
     Route: 048
     Dates: start: 20140211, end: 20140219
  2. PARACETAMOL [Suspect]
     Indication: DIZZINESS
     Route: 048
     Dates: start: 20140219, end: 20140220
  3. PARACETAMOL [Suspect]
     Indication: INFLUENZA LIKE ILLNESS
  4. LEELOO [Suspect]
     Route: 048
     Dates: start: 201401, end: 20140220
  5. CETIRIZINE [Suspect]
     Indication: EYELID OEDEMA
     Route: 048
     Dates: start: 20140220, end: 20140220
  6. CETIRIZINE [Suspect]
     Indication: LIP OEDEMA

REACTIONS (1)
  - Toxic epidermal necrolysis [Not Recovered/Not Resolved]
